FAERS Safety Report 10701116 (Version 1)
Quarter: 2015Q1

REPORT INFORMATION
  Report Type: Spontaneous
  Country: BE (occurrence: BE)
  Receive Date: 20150109
  Receipt Date: 20150109
  Transmission Date: 20150721
  Serious: Yes (Disabling, Other)
  Sender: FDA-Public Use
  Company Number: BE-AMGEN-BELSP2014102875

PATIENT
  Age: 53 Year
  Sex: Female
  Weight: 41 kg

DRUGS (13)
  1. AACIDEXAM                          /00016001/ [Concomitant]
     Indication: PROPHYLAXIS OF NAUSEA AND VOMITING
     Dosage: 10 MG, ONCE EVERY 3 WEEKS
     Route: 042
     Dates: start: 20141118
  2. CISPLATIN. [Concomitant]
     Active Substance: CISPLATIN
     Indication: OESOPHAGEAL NEOPLASM
     Dosage: 51 MG, ONCE EVERY 3 WEEKS
     Route: 042
     Dates: start: 20141118
  3. EMEND [Concomitant]
     Active Substance: APREPITANT
     Dosage: 80 MG D2 D3
     Route: 048
  4. DEXAMETHASONE. [Concomitant]
     Active Substance: DEXAMETHASONE
     Dosage: 4 MG D3 AND D4, 3 DOSES ONCE EVERY 3 WEEKS
     Route: 048
  5. TILDIEM [Concomitant]
     Active Substance: DILTIAZEM HYDROCHLORIDE
     Indication: HYPERTENSION
     Dosage: 200 MG, ONCE A DAY
     Route: 048
     Dates: start: 20141101
  6. NEULASTA [Suspect]
     Active Substance: PEGFILGRASTIM
     Indication: PROPHYLAXIS
     Dosage: 6 MG, ONCE EVERY 3 WEEKS
     Route: 058
     Dates: start: 20141124, end: 20141126
  7. EMEND [Concomitant]
     Active Substance: APREPITANT
     Indication: PROPHYLAXIS OF NAUSEA AND VOMITING
     Dosage: 125 MG D1 (CHEMOTHERAPY) ONCE EVERY THREE WEEKS
     Route: 048
     Dates: start: 20141118
  8. SPIRIVA [Concomitant]
     Active Substance: TIOTROPIUM BROMIDE MONOHYDRATE
     Dosage: 1 DOSE ONCE A DAY
     Route: 045
     Dates: start: 2008
  9. FLUOROURACIL. [Concomitant]
     Active Substance: FLUOROURACIL
     Indication: OESOPHAGEAL NEOPLASM
     Dosage: 1012 MG, ONCE EVERY 3 WEEKS, 5-DAY PUMP
     Route: 042
     Dates: start: 20141118
  10. LASIX [Concomitant]
     Active Substance: FUROSEMIDE
     Indication: POLYURIA
     Dosage: 40 MG, ONCE EVERY 3 WEEKS
     Route: 042
     Dates: start: 20141118
  11. L-THYROXINE                        /00068001/ [Concomitant]
     Indication: HYPOTHYROIDISM
     Dosage: 75 MCG, ONCE A DAY
     Route: 048
  12. DEXAMETHASONE. [Concomitant]
     Active Substance: DEXAMETHASONE
     Indication: PROPHYLAXIS OF NAUSEA AND VOMITING
     Dosage: 8 MG D2 CHEMOTHERAPY, 3 DOSES ONCE EVERY 3 WEEKS
     Route: 048
     Dates: start: 20141119
  13. ONBREZ [Concomitant]
     Active Substance: INDACATEROL
     Dosage: 1 DOSE ONCE A DAY
     Route: 045

REACTIONS (6)
  - Pruritus [Recovered/Resolved]
  - Arthralgia [Recovered/Resolved]
  - Rash [Recovered/Resolved]
  - Skin reaction [Recovered/Resolved]
  - Mouth swelling [Recovered/Resolved]
  - Joint swelling [Recovered/Resolved]

NARRATIVE: CASE EVENT DATE: 20141124
